FAERS Safety Report 9474813 (Version 1)
Quarter: 2013Q3

REPORT INFORMATION
  Report Type: Spontaneous
  Country: TR (occurrence: TR)
  Receive Date: 20130823
  Receipt Date: 20130823
  Transmission Date: 20140515
  Serious: Yes (Other)
  Sender: FDA-Public Use
  Company Number: PHHY2013TR088468

PATIENT
  Age: 61 Year
  Sex: Male

DRUGS (2)
  1. TRIAMCINOLONE [Suspect]
     Indication: BACK PAIN
     Dosage: 80 MG, UNK
  2. BUPIVACAINE [Suspect]
     Indication: BACK PAIN
     Dosage: 20 MG, UNK

REACTIONS (1)
  - Hiccups [Recovered/Resolved]
